FAERS Safety Report 12554044 (Version 1)
Quarter: 2016Q3

REPORT INFORMATION
  Report Type: Spontaneous
  Country: US (occurrence: US)
  Receive Date: 20160713
  Receipt Date: 20160713
  Transmission Date: 20161109
  Serious: No
  Sender: FDA-Public Use
  Company Number: US-NOVOPROD-493851

PATIENT
  Age: 46 Year
  Sex: Male

DRUGS (2)
  1. SAXENDA [Suspect]
     Active Substance: LIRAGLUTIDE
     Indication: BLOOD PRESSURE INCREASED
     Dosage: 1.8 MG, QD
     Route: 058
     Dates: start: 2016
  2. SAXENDA [Suspect]
     Active Substance: LIRAGLUTIDE
     Indication: OVERWEIGHT
     Dosage: 3.0 MG, QD
     Route: 058
     Dates: start: 201604

REACTIONS (4)
  - Migraine [Recovering/Resolving]
  - Vomiting [Recovering/Resolving]
  - Off label use [Not Recovered/Not Resolved]
  - Nausea [Recovering/Resolving]

NARRATIVE: CASE EVENT DATE: 201604
